FAERS Safety Report 4415183-7 (Version None)
Quarter: 2004Q3

REPORT INFORMATION
  Report Type: 
  Country: None (occurrence: None)
  Receive Date: 20040730
  Receipt Date: 20040622
  Transmission Date: 20050211
  Serious: Yes (Hospitalization)
  Sender: FDA-Public Use
  Company Number: 2004-BP-04900BP

PATIENT
  Age: 54 Year
  Sex: Male

DRUGS (5)
  1. MIRAPEX           (PRAMIPEXOLE DIHYDROCHLOLORIDE) [Suspect]
     Indication: PARKINSON'S DISEASE
     Dosage: SEE IMAGE
     Route: 048
     Dates: start: 20040601, end: 20040710
  2. MIRAPEX           (PRAMIPEXOLE DIHYDROCHLOLORIDE) [Suspect]
     Indication: PARKINSON'S DISEASE
     Dosage: SEE IMAGE
     Route: 048
     Dates: start: 20040711, end: 20040714
  3. MIRAPEX           (PRAMIPEXOLE DIHYDROCHLOLORIDE) [Suspect]
     Indication: PARKINSON'S DISEASE
     Dosage: SEE IMAGE
     Route: 048
     Dates: start: 20040101
  4. MIRAPEX           (PRAMIPEXOLE DIHYDROCHLOLORIDE) [Suspect]
     Indication: PARKINSON'S DISEASE
     Dosage: SEE IMAGE
     Route: 048
     Dates: start: 20040714
  5. TRIHEXYPHENIDYL HCL [Concomitant]

REACTIONS (7)
  - ABNORMAL BEHAVIOUR [None]
  - ACTIVITIES OF DAILY LIVING IMPAIRED [None]
  - AGGRESSION [None]
  - HALLUCINATION [None]
  - SYNCOPE [None]
  - THINKING ABNORMAL [None]
  - TREMOR [None]
